FAERS Safety Report 11677228 (Version 1)
Quarter: 2015Q4

REPORT INFORMATION
  Report Type: Spontaneous
  Country: US (occurrence: US)
  Receive Date: 20151027
  Receipt Date: 20151027
  Transmission Date: 20160304
  Serious: No
  Sender: FDA-Public Use
  Company Number: US-ELI_LILLY_AND_COMPANY-US200912004906

PATIENT
  Age: 68 Year
  Sex: Female

DRUGS (2)
  1. FORTEO [Suspect]
     Active Substance: TERIPARATIDE
     Indication: OSTEOPOROSIS
     Dosage: 20 UG, DAILY (1/D)
     Dates: start: 20091202
  2. FORTEO [Suspect]
     Active Substance: TERIPARATIDE
     Dosage: 20 UG, DAILY (1/D)
     Dates: end: 201006

REACTIONS (9)
  - Pruritus [Unknown]
  - Myalgia [Recovered/Resolved]
  - Asthenia [Unknown]
  - Muscular weakness [Recovered/Resolved]
  - Dizziness [Unknown]
  - Heart rate increased [Unknown]
  - Bone pain [Recovered/Resolved]
  - Arthralgia [Recovered/Resolved]
  - Weight increased [Unknown]

NARRATIVE: CASE EVENT DATE: 200912
